FAERS Safety Report 9636543 (Version 2)
Quarter: 2013Q4

REPORT INFORMATION
  Report Type: Spontaneous
  Country: US (occurrence: None)
  Receive Date: 20131017
  Receipt Date: 20131029
  Transmission Date: 20140711
  Serious: Yes (Other)
  Sender: FDA-Public Use
  Company Number: 2013SA095669

PATIENT
  Age: 70 Year
  Sex: Female
  Weight: 106.59 kg

DRUGS (7)
  1. GOLD BOND ULTIMATE PROTECTION [Suspect]
     Indication: DRY SKIN
  2. PLAVIX [Concomitant]
  3. LIPITOR [Concomitant]
  4. DIOVANE [Concomitant]
  5. GLIMEPIRIDE [Concomitant]
  6. JANUMET [Concomitant]
  7. METOPROLOL [Concomitant]

REACTIONS (3)
  - Skin exfoliation [None]
  - Skin burning sensation [None]
  - Application site burn [None]
